FAERS Safety Report 8814207 (Version 1)
Quarter: 2012Q4

REPORT INFORMATION
  Report Type: 
  Country: DK (occurrence: DK)
  Receive Date: 20120928
  Receipt Date: 20120928
  Transmission Date: 20130627
  Serious: Yes (Other)
  Sender: FDA-Public Use
  Company Number: DK-JNJFOC-20120910789

PATIENT
  Age: 50 Year
  Sex: Female

DRUGS (2)
  1. NICORETTE [Suspect]
     Indication: SMOKING CESSATION THERAPY
     Dosage: 10-15 gums daily
     Route: 048
     Dates: start: 20050114
  2. UNSPECIFIED HYPERTENSION DRUG [Concomitant]
     Indication: HYPERTENSION
     Route: 065

REACTIONS (2)
  - Nicotine dependence [Not Recovered/Not Resolved]
  - Incorrect drug administration duration [Unknown]
